FAERS Safety Report 7684157 (Version 3)
Quarter: 2013Q4

REPORT INFORMATION
  Report Type: Spontaneous
  Country: CA (occurrence: ZA)
  Receive Date: 20101129
  Receipt Date: 20131022
  Transmission Date: 20140711
  Serious: Yes (Death)
  Sender: FDA-Public Use
  Company Number: CA-RANBAXY-2010US-39561

PATIENT
  Age: 8 Month
  Sex: Female

DRUGS (12)
  1. CIPROFLOXACIN [Suspect]
     Indication: TUBERCULOSIS
     Dosage: UNK
     Route: 065
  2. CO-TRIMOXAZOLE [Suspect]
     Indication: ANTIBIOTIC PROPHYLAXIS
     Dosage: UNK
     Route: 065
  3. ISONIAZID [Suspect]
     Indication: TUBERCULOSIS
     Dosage: 20 MG/KG
     Route: 065
  4. LAMIVUDINE [Suspect]
     Indication: ANTIRETROVIRAL THERAPY
     Dosage: UNK
     Route: 065
  5. LOPINAVIR + RITONAVIR [Suspect]
     Indication: ANTIRETROVIRAL THERAPY
     Dosage: UNK
     Route: 065
  6. PYRAZINAMIDE [Suspect]
     Indication: TUBERCULOSIS
     Dosage: 40 MG/KG
     Route: 065
  7. ZIDOVUDINE [Suspect]
     Indication: ANTIRETROVIRAL THERAPY
     Dosage: UNK
     Route: 065
  8. RIFAMPICIN [Suspect]
     Indication: TUBERCULOSIS
     Dosage: 20 MG/KG
     Route: 065
  9. ETHAMBUTOL [Suspect]
     Indication: TUBERCULOSIS
     Dosage: 20 MG/KG
     Route: 065
  10. RITONAVIR [Suspect]
     Indication: ANTIRETROVIRAL THERAPY
     Dosage: UNK
     Route: 065
  11. AMIKACIN [Suspect]
     Indication: TUBERCULOSIS
     Dosage: UNK
     Route: 065
  12. BCG VACCINE [Suspect]
     Indication: PRODUCT USED FOR UNKNOWN INDICATION
     Dosage: UNK
     Route: 065

REACTIONS (3)
  - Bovine tuberculosis [Unknown]
  - Hepatotoxicity [Fatal]
  - Immune reconstitution inflammatory syndrome [Unknown]
